FAERS Safety Report 21555250 (Version 1)
Quarter: 2022Q4

REPORT INFORMATION
  Report Type: Spontaneous
  Country: DE (occurrence: None)
  Receive Date: 20221104
  Receipt Date: 20221104
  Transmission Date: 20230113
  Serious: Yes (Death, Other)
  Sender: FDA-Public Use
  Company Number: 2022A352196

PATIENT
  Sex: Male

DRUGS (1)
  1. OLAPARIB [Suspect]
     Active Substance: OLAPARIB
     Indication: Prostate cancer
     Dosage: UNK
     Route: 048

REACTIONS (6)
  - Malignant neoplasm progression [Fatal]
  - Treatment failure [Fatal]
  - Anaemia [Unknown]
  - Leukopenia [Unknown]
  - Hospice care [Unknown]
  - General physical health deterioration [Unknown]
